FAERS Safety Report 20438649 (Version 4)
Quarter: 2022Q1

REPORT INFORMATION
  Report Type: Spontaneous
  Country: US (occurrence: US)
  Receive Date: 20220207
  Receipt Date: 20220310
  Transmission Date: 20220424
  Serious: Yes (Other)
  Sender: FDA-Public Use
  Company Number: US-GLAXOSMITHKLINE-US2022AMR017730

PATIENT
  Sex: Female
  Weight: 64.86 kg

DRUGS (5)
  1. LAMICTAL [Suspect]
     Active Substance: LAMOTRIGINE
     Indication: Product used for unknown indication
     Dosage: UNK
     Dates: end: 202110
  2. WELLBUTRIN [Suspect]
     Active Substance: BUPROPION HYDROCHLORIDE
     Indication: Product used for unknown indication
     Dosage: UNK
  3. EFFEXOR XR [Suspect]
     Active Substance: VENLAFAXINE HYDROCHLORIDE
     Indication: Product used for unknown indication
     Dosage: UNK
     Dates: start: 2012
  4. VENLAFAXINE [Suspect]
     Active Substance: VENLAFAXINE HYDROCHLORIDE
     Indication: Product used for unknown indication
     Dosage: 150 MG, QD
     Dates: start: 202111
  5. VENLAFAXINE [Suspect]
     Active Substance: VENLAFAXINE HYDROCHLORIDE
     Dosage: 75 MG, QD
     Dates: start: 202111

REACTIONS (11)
  - Suicidal ideation [Unknown]
  - Illness [Unknown]
  - Tremor [Unknown]
  - Headache [Unknown]
  - Somnolence [Unknown]
  - Anxiety [Unknown]
  - Nausea [Unknown]
  - Adverse drug reaction [Unknown]
  - Wrong technique in product usage process [Unknown]
  - Drug ineffective [Unknown]
  - Product substitution issue [Unknown]
